FAERS Safety Report 5149864-7 (Version None)
Quarter: 2006Q4

REPORT INFORMATION
  Report Type: 
  Country: None (occurrence: None)
  Receive Date: 20061108
  Receipt Date: 20061024
  Transmission Date: 20070319
  Serious: Yes (Other)
  Sender: FDA-Public Use
  Company Number: 2006133934

PATIENT
  Age: 61 Year
  Sex: Male

DRUGS (1)
  1. LIPITOR [Suspect]

REACTIONS (3)
  - FATIGUE [None]
  - PAIN IN EXTREMITY [None]
  - RESPIRATORY DISORDER [None]
